FAERS Safety Report 8425952-4 (Version None)
Quarter: 2012Q2

REPORT INFORMATION
  Report Type: 
  Country: None (occurrence: None)
  Receive Date: 20120601
  Receipt Date: 20120518
  Transmission Date: 20120825
  Serious: Yes (Disabling)
  Sender: FDA-Public Use
  Company Number: GB-1192274

PATIENT
  Age: 63 Year
  Sex: Male
  Weight: 63.3 kg

DRUGS (20)
  1. MONTELUKAST [Concomitant]
  2. ASPIRIN [Concomitant]
  3. CODEINE PHOSPHATE [Concomitant]
  4. DOMPERIDONE [Concomitant]
  5. AZITHROMYCIN [Concomitant]
  6. BUDESONIDE [Concomitant]
  7. CARVEDILOL [Concomitant]
  8. LISINOPRIL [Concomitant]
  9. SIMVASTATIN [Concomitant]
  10. BENDROFLUMETHIAZIDE [Concomitant]
  11. LANTUS [Concomitant]
  12. ALBUTEROL [Concomitant]
  13. CILOXAN [Suspect]
     Dosage: (OPHTHALMIC), (OPHTHALMIC)
     Route: 047
     Dates: start: 20120308, end: 20120313
  14. CILOXAN [Suspect]
     Dosage: (OPHTHALMIC), (OPHTHALMIC)
     Route: 047
     Dates: start: 20120319, end: 20120324
  15. DOXYCYCLINE [Concomitant]
  16. LANSOPRAZOLE [Concomitant]
  17. LEVOTHYROXINE SODIUM [Concomitant]
  18. ULTIMATE [Concomitant]
  19. NOVORAPID [Concomitant]
  20. NYSTATIN [Concomitant]

REACTIONS (1)
  - TENDON RUPTURE [None]
